FAERS Safety Report 8977917 (Version 2)
Quarter: 2013Q3

REPORT INFORMATION
  Report Type: Report from Study
  Country: JP (occurrence: JP)
  Receive Date: 20121219
  Receipt Date: 20130925
  Transmission Date: 20140515
  Serious: Yes (Other)
  Sender: FDA-Public Use
  Company Number: JP-VERTEX PHARMACEUTICALS INC.-2012-026283

PATIENT
  Age: 50 Year
  Sex: Female

DRUGS (12)
  1. VX-950 (TELAPREVIR) [Suspect]
     Indication: CHRONIC HEPATITIS C
     Dosage: 1500 MG, QD
     Route: 048
     Dates: start: 20120614, end: 20120831
  2. RIBAVIRIN [Suspect]
     Indication: CHRONIC HEPATITIS C
     Dosage: 600 MG, QD
     Route: 048
     Dates: start: 20120614, end: 20121130
  3. PEGINTRON [Suspect]
     Indication: CHRONIC HEPATITIS C
     Dosage: 1.5 ?G/KG, QW
     Route: 058
     Dates: start: 20120614, end: 20120928
  4. PEGINTRON [Suspect]
     Dosage: 0.76 ?G/KG, QW
     Route: 058
     Dates: start: 20120929, end: 20121026
  5. PEGINTRON [Suspect]
     Dosage: 0.92 ?G/KG, QW
     Route: 058
     Dates: start: 20121027, end: 20121109
  6. PEGINTRON [Suspect]
     Dosage: 0.76 ?G/KG, QW
     Route: 058
     Dates: start: 20121110, end: 20121130
  7. PEGINTRON [Suspect]
     Dosage: 0.61 ?G/KG, QW
     Route: 058
     Dates: start: 20121201, end: 20121201
  8. BASEN [Concomitant]
     Dosage: 0.6 MG, QD
     Route: 048
     Dates: start: 20120507
  9. TASUOMIN [Concomitant]
     Dosage: 20 MG, QD
     Route: 048
     Dates: start: 20120601
  10. NORVASC [Concomitant]
     Dosage: 5 MG, QD
     Route: 048
     Dates: start: 20120622
  11. LEUPLIN [Concomitant]
     Dosage: 3.75 MG, QD
     Route: 058
     Dates: start: 20120628
  12. GLACTIV [Concomitant]
     Dosage: 25 MG, QD
     Route: 048
     Dates: start: 20120915, end: 20121012

REACTIONS (1)
  - White blood cell count decreased [Recovered/Resolved]
